FAERS Safety Report 7009676-6 (Version None)
Quarter: 2010Q3

REPORT INFORMATION
  Report Type: 
  Country: None (occurrence: None)
  Receive Date: 20100923
  Receipt Date: 20100913
  Transmission Date: 20110219
  Serious: Yes (Hospitalization, Other)
  Sender: FDA-Public Use
  Company Number: US-PFIZER INC-2010060969

PATIENT
  Sex: Female

DRUGS (7)
  1. CHANTIX [Suspect]
     Indication: SMOKING CESSATION THERAPY
     Dosage: STARTER MONTH
     Dates: start: 20070901, end: 20071201
  2. CHANTIX [Suspect]
     Dosage: REFILLS FOR CONTINUING MONTH PACKS
     Dates: start: 20080401, end: 20080701
  3. LAMICTAL [Concomitant]
     Indication: BIPOLAR DISORDER
     Dosage: UNK
  4. ABILIFY [Concomitant]
     Indication: BIPOLAR DISORDER
     Dosage: UNK
     Dates: start: 20080401, end: 20080701
  5. ABILIFY [Concomitant]
     Indication: DEPRESSION
  6. ABILIFY [Concomitant]
     Indication: ANXIETY
  7. ABILIFY [Concomitant]
     Indication: SUICIDAL IDEATION

REACTIONS (5)
  - ANXIETY [None]
  - BIPOLAR DISORDER [None]
  - INSOMNIA [None]
  - PSYCHOTIC DISORDER [None]
  - SUICIDE ATTEMPT [None]
